FAERS Safety Report 20771464 (Version 2)
Quarter: 2023Q1

REPORT INFORMATION
  Report Type: Other
  Country: CA (occurrence: None)
  Receive Date: 20220429
  Receipt Date: 20230201
  Transmission Date: 20230417
  Serious: Yes (Other)
  Sender: FDA-Public Use
  Company Number: CA-ROCHE-3087314

PATIENT
  Age: 44 Year
  Sex: Male

DRUGS (4)
  1. OCREVUS [Suspect]
     Active Substance: OCRELIZUMAB
     Indication: Primary progressive multiple sclerosis
     Dosage: INITIALLY 300 MG AT DAY 0 AND 14, THEN 600 MG EVERY 6 MONTH
     Route: 042
     Dates: start: 20201022
  2. ATIVAN [Concomitant]
     Active Substance: LORAZEPAM
  3. ADVAIR HFA [Concomitant]
     Active Substance: FLUTICASONE PROPIONATE\SALMETEROL XINAFOATE
  4. FLUTICASONE FUROATE [Concomitant]
     Active Substance: FLUTICASONE FUROATE

REACTIONS (3)
  - COVID-19 [Recovered/Resolved]
  - Arthritis infective [Recovered/Resolved]
  - Affective disorder [Unknown]

NARRATIVE: CASE EVENT DATE: 20220401
